FAERS Safety Report 18239200 (Version 1)
Quarter: 2020Q3

REPORT INFORMATION
  Report Type: Spontaneous
  Country: AU (occurrence: AU)
  Receive Date: 20200907
  Receipt Date: 20200907
  Transmission Date: 20201103
  Serious: Yes (Other)
  Sender: FDA-Public Use
  Company Number: NVSC2020AU244997

PATIENT

DRUGS (9)
  1. MYCOPHENOLATE MOFETIL. [Concomitant]
     Active Substance: MYCOPHENOLATE MOFETIL
     Indication: IMMUNOSUPPRESSANT DRUG THERAPY
     Dosage: 1500 MG, BID POSTRANSPLANT
     Route: 042
  2. BASILIXIMAB [Suspect]
     Active Substance: BASILIXIMAB
     Indication: IMMUNOSUPPRESSANT DRUG THERAPY
  3. MYCOPHENOLATE MOFETIL. [Concomitant]
     Active Substance: MYCOPHENOLATE MOFETIL
     Indication: HEART TRANSPLANT
     Dosage: 1500 MG, PRETRANSPLANT
     Route: 048
  4. PREDNISOLONE. [Concomitant]
     Active Substance: PREDNISOLONE
     Indication: IMMUNOSUPPRESSANT DRUG THERAPY
  5. BASILIXIMAB [Suspect]
     Active Substance: BASILIXIMAB
     Indication: HEART TRANSPLANT
     Dosage: 40 MG, Q96H ON DAY 0 AND DAY 4
     Route: 042
  6. PREDNISOLONE. [Concomitant]
     Active Substance: PREDNISOLONE
     Indication: HEART TRANSPLANT
     Dosage: UNK, REDUCED BY 5 MG/D TO 20?25 MG/D
     Route: 048
  7. METHYLPREDNISOLONE. [Concomitant]
     Active Substance: METHYLPREDNISOLONE
     Indication: IMMUNOSUPPRESSANT DRUG THERAPY
     Dosage: 125 MG, TID
     Route: 042
  8. METHYLPREDNISOLONE. [Concomitant]
     Active Substance: METHYLPREDNISOLONE
     Indication: HEART TRANSPLANT
     Dosage: 500 MG INTRAOPERATIVELY ON COMPLETION OF SURGERY (TOTAL 1000 MG)
     Route: 042
  9. METHYLPREDNISOLONE. [Concomitant]
     Active Substance: METHYLPREDNISOLONE
     Dosage: 1 MG/KG, QD DIVIDED INTO 2 DOSES
     Route: 042

REACTIONS (2)
  - Product use in unapproved indication [Unknown]
  - Wound infection [Unknown]
